FAERS Safety Report 13769038 (Version 1)
Quarter: 2017Q3

REPORT INFORMATION
  Report Type: Spontaneous
  Country: CO (occurrence: CO)
  Receive Date: 20170719
  Receipt Date: 20170719
  Transmission Date: 20171127
  Serious: Yes (Hospitalization, Other)
  Sender: FDA-Public Use
  Company Number: CO-GLAXOSMITHKLINE-CO2015GSK138609

PATIENT
  Age: 18 Year
  Sex: Male

DRUGS (3)
  1. LAMOTRIGINE. [Suspect]
     Active Substance: LAMOTRIGINE
     Indication: BIPOLAR DISORDER
     Dosage: AT NIGHT
     Route: 065
  2. QUETIAPINE. [Suspect]
     Active Substance: QUETIAPINE
     Indication: BIPOLAR DISORDER
     Dosage: AT NIGHT
     Route: 065
  3. LORAZEPAM. [Concomitant]
     Active Substance: LORAZEPAM
     Dosage: 1 MG, UNK
     Route: 048

REACTIONS (3)
  - Rhabdomyolysis [Recovering/Resolving]
  - Pain [Unknown]
  - Muscular weakness [Unknown]
